FAERS Safety Report 10042032 (Version 2)
Quarter: 2014Q2

REPORT INFORMATION
  Report Type: Spontaneous
  Country: GB (occurrence: GB)
  Receive Date: 20140327
  Receipt Date: 20140421
  Transmission Date: 20141212
  Serious: No
  Sender: FDA-Public Use
  Company Number: GB-BRISTOL-MYERS SQUIBB COMPANY-20546396

PATIENT
  Age: 77 Year
  Sex: Female

DRUGS (5)
  1. ELIQUIS [Suspect]
     Indication: ATRIAL FIBRILLATION
     Route: 048
     Dates: start: 20131213, end: 201401
  2. BISOPROLOL [Concomitant]
  3. LISINOPRIL [Concomitant]
  4. ALENDRONIC ACID [Concomitant]
     Dosage: TABLETS
  5. CALCICHEW [Concomitant]

REACTIONS (2)
  - Hallucination [Unknown]
  - Visual impairment [Recovering/Resolving]
